FAERS Safety Report 5014938-8 (Version None)
Quarter: 2006Q2

REPORT INFORMATION
  Report Type: 
  Country: None (occurrence: None)
  Receive Date: 20060422
  Receipt Date: 20050418
  Transmission Date: 20061013
  Serious: Yes (Hospitalization, Other)
  Sender: FDA-Public Use
  Company Number: PHEH2005US02283

PATIENT
  Age: 7 Year
  Sex: Male
  Weight: 107.5 kg

DRUGS (6)
  1. FORADIL [Suspect]
     Indication: BRONCHOSPASM
     Dosage: 1 PUFF, INHALATION
     Route: 055
     Dates: start: 20050215, end: 20050217
  2. SEREVENT [Concomitant]
  3. PREDNISONE TAB [Concomitant]
  4. RHINOCORT [Concomitant]
  5. ASTELIN [Concomitant]
  6. XOPENEX [Concomitant]

REACTIONS (5)
  - ANXIETY [None]
  - DYSPNOEA [None]
  - FEELING JITTERY [None]
  - INSOMNIA [None]
  - NERVOUSNESS [None]
